FAERS Safety Report 25392547 (Version 1)
Quarter: 2025Q2

REPORT INFORMATION
  Report Type: Spontaneous
  Country: US (occurrence: US)
  Receive Date: 20250603
  Receipt Date: 20250603
  Transmission Date: 20250716
  Serious: No
  Sender: SANOFI AVENTIS
  Company Number: US-SANOFI-02540856

PATIENT
  Age: 47 Year
  Sex: Female

DRUGS (2)
  1. FABRAZYME [Suspect]
     Active Substance: AGALSIDASE BETA
     Indication: Fabry^s disease
     Dosage: 137 MG, QOW
     Route: 065
     Dates: start: 20130530
  2. FABRAZYME [Suspect]
     Active Substance: AGALSIDASE BETA
     Dosage: 125 MG, QOW
     Route: 065
     Dates: start: 20250530

REACTIONS (1)
  - Off label use [Unknown]

NARRATIVE: CASE EVENT DATE: 20250530
